FAERS Safety Report 10616838 (Version 2)
Quarter: 2014Q4

REPORT INFORMATION
  Report Type: Spontaneous
  Country: FR (occurrence: FR)
  Receive Date: 20141201
  Receipt Date: 20141201
  Transmission Date: 20150529
  Serious: Yes (Death, Other)
  Sender: FDA-Public Use
  Company Number: FR-PFIZER INC-2014276811

PATIENT
  Age: 68 Year
  Sex: Female
  Weight: 70 kg

DRUGS (2)
  1. SOLU-MEDROL [Suspect]
     Active Substance: METHYLPREDNISOLONE SODIUM SUCCINATE
     Indication: RHEUMATOID ARTHRITIS
     Dosage: 80 MG, DAILY
     Route: 042
     Dates: start: 20130808, end: 20130818
  2. ENBREL [Suspect]
     Active Substance: ETANERCEPT
     Indication: RHEUMATOID ARTHRITIS
     Dosage: 50 MG, UNK
     Dates: start: 201207

REACTIONS (2)
  - Meningitis staphylococcal [Fatal]
  - Abscess [Not Recovered/Not Resolved]

NARRATIVE: CASE EVENT DATE: 20130816
